FAERS Safety Report 5179718-1 (Version None)
Quarter: 2006Q4

REPORT INFORMATION
  Report Type: 
  Country: None (occurrence: None)
  Receive Date: 20061212
  Receipt Date: 20061201
  Transmission Date: 20070319
  Serious: Yes (Hospitalization, Other)
  Sender: FDA-Public Use
  Company Number: 2006052483

PATIENT
  Age: 72 Year
  Sex: Male

DRUGS (4)
  1. CADUET [Suspect]
     Indication: BLOOD CHOLESTEROL INCREASED
     Dosage: 5MG/10MG (1 IN 1 D), ORAL
     Route: 048
     Dates: start: 20060301, end: 20060406
  2. VALSARTAN [Concomitant]
  3. ALLOPURINOL [Concomitant]
  4. COLCHICINE            (COLCHICINE) [Concomitant]

REACTIONS (4)
  - BLOOD CREATINE PHOSPHOKINASE INCREASED [None]
  - CHOLELITHIASIS [None]
  - GALLBLADDER ENLARGEMENT [None]
  - HEPATIC STEATOSIS [None]
